FAERS Safety Report 7981974-9 (Version None)
Quarter: 2011Q4

REPORT INFORMATION
  Report Type: 
  Country: None (occurrence: None)
  Receive Date: 20111213
  Receipt Date: 20111201
  Transmission Date: 20120403
  Serious: Yes (Other)
  Sender: FDA-Public Use
  Company Number: US-007019

PATIENT
  Sex: Female
  Weight: 72.5755 kg

DRUGS (1)
  1. TRANEXAMIC ACID [Suspect]
     Indication: MENORRHAGIA
     Dosage: (2 TABLETS THREE TIMES A DAY ORAL)
     Route: 048
     Dates: start: 20111021, end: 20111201

REACTIONS (1)
  - DEEP VEIN THROMBOSIS [None]
